FAERS Safety Report 9663587 (Version 1)
Quarter: 2013Q4

REPORT INFORMATION
  Report Type: Spontaneous
  Country: US (occurrence: US)
  Receive Date: 20131101
  Receipt Date: 20131101
  Transmission Date: 20140711
  Serious: No
  Sender: FDA-Public Use
  Company Number: US-PFIZER INC-2013311459

PATIENT
  Age: 71 Year
  Sex: Male

DRUGS (3)
  1. NEURONTIN [Suspect]
     Dosage: UNK
  2. GABAPENTIN [Suspect]
     Dosage: UNK
  3. INFLUENZA VACCINE [Suspect]
     Dosage: UNK

REACTIONS (7)
  - Drug hypersensitivity [Unknown]
  - Vomiting [Unknown]
  - Diarrhoea [Unknown]
  - Urticaria [Unknown]
  - Rash [Unknown]
  - Nausea [Unknown]
  - Muscle spasms [Unknown]
